FAERS Safety Report 5749059-X (Version None)
Quarter: 2008Q2

REPORT INFORMATION
  Report Type: 
  Country: None (occurrence: None)
  Receive Date: 20080527
  Receipt Date: 20080522
  Transmission Date: 20081010
  Serious: Yes (Hospitalization, Other)
  Sender: FDA-Public Use
  Company Number: US-BRISTOL-MYERS SQUIBB COMPANY-14088520

PATIENT
  Age: 59 Year
  Sex: Female

DRUGS (12)
  1. ERBITUX [Suspect]
     Indication: COLON CANCER METASTATIC
     Route: 042
     Dates: start: 20050901
  2. CAMPTOSAR [Concomitant]
  3. BONIVA [Concomitant]
  4. MULTI-VITAMIN [Concomitant]
  5. FERROUS [Concomitant]
  6. CIPRO [Concomitant]
  7. POTASSIUM SUPPLEMENTS [Concomitant]
  8. LEVAQUIN [Concomitant]
  9. KEFLEX [Concomitant]
  10. LOMOTIL [Concomitant]
  11. IMODIUM [Concomitant]
  12. NEUPOGEN [Concomitant]

REACTIONS (1)
  - NEPHROLITHIASIS [None]
